FAERS Safety Report 9023220 (Version 1)
Quarter: 2013Q1

REPORT INFORMATION
  Report Type: Spontaneous
  Country: US (occurrence: US)
  Receive Date: 20130120
  Receipt Date: 20130120
  Transmission Date: 20140127
  Serious: No
  Sender: FDA-Public Use
  Company Number: US-ALLERGAN-1214358US

PATIENT
  Age: 72 Year
  Sex: Female

DRUGS (7)
  1. BOTOX? [Suspect]
     Indication: TORTICOLLIS
     Dosage: 350 UNITS, SINGLE
     Route: 030
     Dates: start: 20121009, end: 20121009
  2. BOTOX? [Suspect]
     Indication: OROMANDIBULAR DYSTONIA
  3. ALIGN [Concomitant]
     Indication: PRODUCT USED FOR UNKNOWN INDICATION
     Dosage: UNK
     Route: 048
  4. CALCIUM [Concomitant]
     Indication: SUPPLEMENTATION THERAPY
     Dosage: UNK
     Route: 048
  5. ATIVAN [Concomitant]
     Indication: DYSTONIA
     Dosage: UNK
  6. LIPITOR [Concomitant]
     Indication: BLOOD CHOLESTEROL INCREASED
     Dosage: UNK UNK, QD
     Route: 048
  7. ALLEGRA                            /01314201/ [Concomitant]
     Indication: SEASONAL ALLERGY
     Dosage: UNK

REACTIONS (3)
  - Off label use [Unknown]
  - Injection site urticaria [Unknown]
  - Injection site pruritus [Unknown]
